FAERS Safety Report 9751829 (Version 1)
Quarter: 2013Q4

REPORT INFORMATION
  Report Type: Spontaneous
  Country: US (occurrence: US)
  Receive Date: 20131213
  Receipt Date: 20131213
  Transmission Date: 20140711
  Serious: No
  Sender: FDA-Public Use
  Company Number: US-009507513-1311USA011542

PATIENT
  Sex: Female

DRUGS (4)
  1. DULERA [Suspect]
     Indication: ASTHMA
     Dosage: ONE INHALATION TWICE A DAY
     Route: 055
     Dates: start: 20121119
  2. SPIRIVA [Concomitant]
  3. VENTOLIN (ALBUTEROL) [Concomitant]
  4. VITAMINS (UNSPECIFIED) [Concomitant]

REACTIONS (5)
  - Hypoaesthesia [Not Recovered/Not Resolved]
  - Cough [Not Recovered/Not Resolved]
  - Dysphonia [Not Recovered/Not Resolved]
  - Kidney infection [Not Recovered/Not Resolved]
  - Product quality issue [Unknown]
